FAERS Safety Report 14495768 (Version 3)
Quarter: 2018Q1

REPORT INFORMATION
  Report Type: Spontaneous
  Country: US (occurrence: US)
  Receive Date: 20180207
  Receipt Date: 20180326
  Transmission Date: 20180509
  Serious: Yes (Other)
  Sender: FDA-Public Use
  Company Number: US-BRISTOL-MYERS SQUIBB COMPANY-BMS-2018-007037

PATIENT
  Age: 80 Year
  Sex: Female
  Weight: 59.41 kg

DRUGS (5)
  1. ELIQUIS [Suspect]
     Active Substance: APIXABAN
     Indication: CEREBROVASCULAR ACCIDENT PROPHYLAXIS
     Dosage: 5 MG, BID
     Route: 048
     Dates: start: 201711
  2. GLUCOSAMINE CHONDROITIN            /01430901/ [Concomitant]
     Indication: PRODUCT USED FOR UNKNOWN INDICATION
     Route: 065
  3. ATENOLOL. [Concomitant]
     Active Substance: ATENOLOL
     Indication: PRODUCT USED FOR UNKNOWN INDICATION
     Dosage: UNK, PRN
     Route: 065
  4. COLLAGEN [Concomitant]
     Active Substance: COLLAGEN
     Indication: PRODUCT USED FOR UNKNOWN INDICATION
     Route: 065
  5. HYALURONIC ACID [Concomitant]
     Active Substance: HYALURONIC ACID
     Indication: PRODUCT USED FOR UNKNOWN INDICATION
     Route: 065

REACTIONS (12)
  - Chills [Unknown]
  - Muscle spasms [Unknown]
  - Bronchitis [Unknown]
  - Contusion [Not Recovered/Not Resolved]
  - Gastrointestinal disorder [Unknown]
  - Renal pain [Unknown]
  - Heart rate increased [Unknown]
  - Pain [Unknown]
  - Arthralgia [Unknown]
  - Pneumonia [Unknown]
  - Palpitations [Unknown]
  - Hepatic pain [Unknown]

NARRATIVE: CASE EVENT DATE: 201802
